FAERS Safety Report 24740059 (Version 2)
Quarter: 2024Q4

REPORT INFORMATION
  Report Type: Report from Study
  Country: ES (occurrence: ES)
  Receive Date: 20241216
  Receipt Date: 20241219
  Transmission Date: 20250115
  Serious: Yes (Death, Hospitalization)
  Sender: CELLTRION
  Company Number: ES-AstraZeneca-2024A191019

PATIENT

DRUGS (7)
  1. INFLIXIMAB [Suspect]
     Active Substance: INFLIXIMAB
     Indication: Pneumonitis
     Dosage: 350 MILLIGRAM, SINGLE
     Dates: end: 20240821
  2. ENFORTUMAB VEDOTIN [Suspect]
     Active Substance: ENFORTUMAB VEDOTIN
     Indication: Bladder cancer
     Dosage: 1.25 MILLIGRAM/KILOGRAM, SINGLE
     Route: 042
     Dates: start: 20240807, end: 20240807
  3. ENFORTUMAB VEDOTIN [Suspect]
     Active Substance: ENFORTUMAB VEDOTIN
     Dosage: 1.25 MILLIGRAM/KILOGRAM, SINGLE
     Route: 042
     Dates: start: 20240814, end: 20240814
  4. DURVALUMAB [Suspect]
     Active Substance: DURVALUMAB
     Indication: Bladder cancer
     Dosage: 1500 MILLIGRAM, UNK, FREQUENCY: Q4WK, (VOLUME OF INFUSION: 250 ML, CYCLE 1 DAY 1).
     Route: 042
     Dates: start: 20240807, end: 20240807
  5. TREMELIMUMAB [Suspect]
     Active Substance: TREMELIMUMAB
     Indication: Bladder cancer
     Dosage: 75 MG CYCLE 1 DAY 1).
     Route: 042
     Dates: start: 20240807, end: 20240807
  6. ENALAPRIL [Concomitant]
     Active Substance: ENALAPRIL
     Indication: Hypertension
     Dosage: 20 MILLIGRAM, QD
     Route: 048
     Dates: start: 20050809
  7. HYDROCHLOROTHIAZIDE [Concomitant]
     Active Substance: HYDROCHLOROTHIAZIDE
     Indication: Hypertension
     Dosage: 12.5 MILLIGRAM, QD
     Route: 048
     Dates: start: 20050809

REACTIONS (1)
  - Immune-mediated lung disease [Fatal]

NARRATIVE: CASE EVENT DATE: 20240817
